FAERS Safety Report 4637219-0 (Version None)
Quarter: 2005Q1

REPORT INFORMATION
  Report Type: 
  Country: None (occurrence: None)
  Receive Date: 20050325
  Receipt Date: 20041202
  Transmission Date: 20050727
  Serious: No
  Sender: FDA-Public Use
  Company Number: USA041285056

PATIENT
  Age: 64 Year
  Sex: Female

DRUGS (1)
  1. FORTEO [Suspect]
     Indication: OSTEOPOROSIS
     Dates: start: 20041119

REACTIONS (5)
  - DIZZINESS [None]
  - DYSGEUSIA [None]
  - HEART RATE INCREASED [None]
  - MYALGIA [None]
  - PARAESTHESIA ORAL [None]
